FAERS Safety Report 5724936-4 (Version None)
Quarter: 2008Q2

REPORT INFORMATION
  Report Type: 
  Country: None (occurrence: None)
  Receive Date: 20080501
  Receipt Date: 20080424
  Transmission Date: 20081010
  Serious: Yes (Hospitalization)
  Sender: FDA-Public Use
  Company Number: US-GILEAD-2008-0016247

PATIENT
  Sex: Female
  Weight: 94.432 kg

DRUGS (12)
  1. LETAIRIS [Suspect]
     Indication: PULMONARY HYPERTENSION
     Route: 048
     Dates: start: 20080225
  2. REVATIO [Concomitant]
     Route: 048
  3. LASIX [Concomitant]
     Route: 048
  4. BENICAR [Concomitant]
     Route: 048
  5. COUMADIN [Concomitant]
     Route: 048
  6. PREDNISONE [Concomitant]
     Route: 048
  7. GEMFIBROZIL [Concomitant]
     Route: 048
  8. GLYBURIDE [Concomitant]
     Route: 048
  9. ASPIRIN [Concomitant]
     Route: 048
  10. CALCIUM +D [Concomitant]
     Route: 048
  11. POTASSIUM CHLORIDE [Concomitant]
     Route: 048
  12. IRON [Concomitant]
     Route: 048

REACTIONS (1)
  - ANAEMIA [None]
